FAERS Safety Report 4918965-8 (Version None)
Quarter: 2006Q1

REPORT INFORMATION
  Report Type: 
  Country: None (occurrence: None)
  Receive Date: 20060222
  Receipt Date: 20060209
  Transmission Date: 20060701
  Serious: Yes (Hospitalization)
  Sender: FDA-Public Use
  Company Number: FR-GLAXOSMITHKLINE-B0412616A

PATIENT
  Age: 57 Year
  Sex: Male

DRUGS (11)
  1. ZOVIRAX [Suspect]
     Indication: UVEITIS
     Dosage: 10MGK THREE TIMES PER DAY
     Route: 042
     Dates: start: 20060106, end: 20060117
  2. PYRIMETHAMINE TAB [Suspect]
     Indication: EYE INFECTION TOXOPLASMAL
     Dosage: 50MG PER DAY
     Route: 048
     Dates: start: 20060114, end: 20060124
  3. SULFADIAZINE [Suspect]
     Indication: EYE INFECTION TOXOPLASMAL
     Dosage: 4G PER DAY
     Route: 048
     Dates: start: 20060114, end: 20060124
  4. LEDERFOLINE [Concomitant]
  5. VEXOL [Concomitant]
  6. XALATAN [Concomitant]
  7. CARTEOL [Concomitant]
  8. SOLUPRED [Concomitant]
  9. DIFFU K [Concomitant]
  10. DIAMOX [Concomitant]
  11. ALPHAGAN [Concomitant]

REACTIONS (1)
  - RENAL FAILURE ACUTE [None]
